FAERS Safety Report 7421926-0 (Version None)
Quarter: 2011Q2

REPORT INFORMATION
  Report Type: 
  Country: None (occurrence: None)
  Receive Date: 20110418
  Receipt Date: 20110322
  Transmission Date: 20111010
  Serious: No
  Sender: FDA-Public Use
  Company Number: US-B.I. PHARMACEUTICALS,INC./RIDGEFIELD-2011-BP-08901BP

PATIENT
  Sex: Male

DRUGS (5)
  1. METOPROLOL [Concomitant]
     Indication: ATRIAL FIBRILLATION
     Dosage: 100 MG
  2. MEGA 3 KRILL OIL [Concomitant]
     Indication: ATRIAL FIBRILLATION
     Dosage: 300 MG
  3. TRIAMTERENE AND HYDROCHLOROTHIAZIDE [Concomitant]
     Indication: ATRIAL FIBRILLATION
     Dosage: 37.5 NR
  4. PRADAXA [Suspect]
     Indication: ATRIAL FIBRILLATION
     Dosage: 300 MG
     Route: 048
     Dates: start: 20110308
  5. DILTIAZEM 24 HR ER [Concomitant]
     Indication: ATRIAL FIBRILLATION
     Dosage: 150 MG

REACTIONS (3)
  - PARAESTHESIA [None]
  - DYSPEPSIA [None]
  - DYSPHAGIA [None]
